FAERS Safety Report 9397056 (Version 1)
Quarter: 2013Q3

REPORT INFORMATION
  Report Type: Spontaneous
  Country: US (occurrence: US)
  Receive Date: 20130712
  Receipt Date: 20130712
  Transmission Date: 20140515
  Serious: No
  Sender: FDA-Public Use
  Company Number: US-PFIZER INC-2013202525

PATIENT
  Age: 92 Year
  Sex: Female
  Weight: 63.49 kg

DRUGS (1)
  1. DETROL [Suspect]
     Indication: URINARY INCONTINENCE
     Dosage: UNK, 1X/DAY
     Dates: end: 20130627

REACTIONS (2)
  - Confusional state [Recovered/Resolved]
  - Hallucination [Recovered/Resolved]
